FAERS Safety Report 9191378 (Version 2)
Quarter: 2013Q2

REPORT INFORMATION
  Report Type: Report from Study
  Country: SK (occurrence: SK)
  Receive Date: 20130326
  Receipt Date: 20130404
  Transmission Date: 20140414
  Serious: Yes (Death)
  Sender: FDA-Public Use
  Company Number: SK-ASTELLAS-2013EU002626

PATIENT
  Age: 61 Year
  Sex: Male

DRUGS (10)
  1. BLINDED ENZALUTAMIDE [Suspect]
     Indication: PROSTATE CANCER
     Dosage: 160 MG, UID/QD
     Route: 048
     Dates: start: 20110830, end: 20130215
  2. ZOLEDRONIC ACID [Concomitant]
     Indication: METASTASES TO BONE
     Dosage: 4 MG, MONTHLY
     Route: 042
     Dates: start: 20080828
  3. EGILOK [Concomitant]
     Indication: HYPERTENSION
     Dosage: 12.5 MG, BID
     Route: 048
     Dates: start: 2004
  4. DICLOFENAC [Concomitant]
     Indication: BONE PAIN
     Dosage: 75 MG, TID
     Route: 048
     Dates: start: 20110830
  5. WARFARIN [Concomitant]
     Indication: VENOUS THROMBOSIS
     Dosage: 7.5 MG, UID/QD
     Route: 048
     Dates: start: 20130114
  6. FURON                              /00032601/ [Concomitant]
     Indication: LYMPHOEDEMA
     Dosage: 4 MG, UID/QD
     Route: 048
     Dates: start: 20130114
  7. FLAVOBION [Concomitant]
     Indication: HEPATIC ENZYME INCREASED
     Dosage: UNK
     Route: 048
     Dates: start: 20130114
  8. ASCORUTIN [Concomitant]
     Indication: CATARACT
     Dosage: UNK
     Route: 048
     Dates: start: 20130103
  9. AESCIN                             /00337201/ [Concomitant]
     Indication: CATARACT
     Dosage: UNK
     Route: 048
     Dates: start: 20130103
  10. TRAMAL [Concomitant]
     Indication: BONE PAIN
     Dosage: 100 MG, PRN
     Route: 048
     Dates: start: 201301

REACTIONS (1)
  - Cardiopulmonary failure [Fatal]
